FAERS Safety Report 17641537 (Version 1)
Quarter: 2020Q2

REPORT INFORMATION
  Report Type: Report from Study
  Country: GB (occurrence: GB)
  Receive Date: 20200407
  Receipt Date: 20200407
  Transmission Date: 20200713
  Serious: Yes (Hospitalization)
  Sender: FDA-Public Use
  Company Number: GB-ALNYLAM PHARMACEUTICALS, INC.-ALN-2017-000040

PATIENT

DRUGS (1)
  1. ONPATTRO [Suspect]
     Active Substance: PATISIRAN SODIUM
     Indication: HEREDITARY NEUROPATHIC AMYLOIDOSIS
     Dosage: 0.3 MG/KG, EVERY 3 WEEKS
     Route: 042

REACTIONS (1)
  - Cardiac failure chronic [Recovered/Resolved]

NARRATIVE: CASE EVENT DATE: 20170826
